FAERS Safety Report 24453745 (Version 1)
Quarter: 2024Q4

REPORT INFORMATION
  Report Type: Spontaneous
  Country: JP (occurrence: JP)
  Receive Date: 20241017
  Receipt Date: 20241017
  Transmission Date: 20250115
  Serious: Yes (Other)
  Sender: MERCK
  Company Number: JP-MSD-M2024-41639

PATIENT
  Age: 74 Year
  Sex: Female

DRUGS (3)
  1. KEYTRUDA [Suspect]
     Active Substance: PEMBROLIZUMAB
     Indication: Non-small cell lung cancer
     Dosage: 200 MILLIGRAM, Q3W
     Route: 041
     Dates: start: 202410
  2. KEYTRUDA [Suspect]
     Active Substance: PEMBROLIZUMAB
     Indication: PD-L1 positive cancer
  3. KEYTRUDA [Suspect]
     Active Substance: PEMBROLIZUMAB
     Indication: Transmembrane receptor tyrosine kinase overexpression

REACTIONS (1)
  - Neutropenia [Not Recovered/Not Resolved]

NARRATIVE: CASE EVENT DATE: 20241001
